FAERS Safety Report 22207354 (Version 1)
Quarter: 2023Q2

REPORT INFORMATION
  Report Type: Spontaneous
  Country: US (occurrence: None)
  Receive Date: 20230413
  Receipt Date: 20230413
  Transmission Date: 20230721
  Serious: No
  Sender: FDA-Public Use
  Company Number: 2023A068016

PATIENT
  Sex: Female

DRUGS (1)
  1. TEZSPIRE [Suspect]
     Active Substance: TEZEPELUMAB-EKKO
     Indication: Asthma
     Route: 058
     Dates: start: 20230315

REACTIONS (8)
  - Asthma [Unknown]
  - Muscle spasms [Unknown]
  - Fatigue [Unknown]
  - Depressed mood [Unknown]
  - Disturbance in attention [Unknown]
  - Anxiety [Unknown]
  - Sleep disorder [Unknown]
  - Drug ineffective [Unknown]
